FAERS Safety Report 11792140 (Version 1)
Quarter: 2015Q4

REPORT INFORMATION
  Report Type: Spontaneous
  Country: FR (occurrence: FR)
  Receive Date: 20151201
  Receipt Date: 20151201
  Transmission Date: 20160305
  Serious: Yes (Death, Other)
  Sender: FDA-Public Use
  Company Number: FR-ELI_LILLY_AND_COMPANY-FR201511009313

PATIENT
  Age: 65 Year
  Sex: Male

DRUGS (6)
  1. CALCIUM [Concomitant]
     Active Substance: CALCIUM
     Route: 065
  2. LISINOPRIL. [Concomitant]
     Active Substance: LISINOPRIL
     Route: 065
  3. MULTIVITAMINS [Concomitant]
     Active Substance: VITAMINS
     Route: 065
  4. CAPECITABINE. [Concomitant]
     Active Substance: CAPECITABINE
     Route: 065
  5. GEMCITABINE HYDROCHLORIDE. [Suspect]
     Active Substance: GEMCITABINE HYDROCHLORIDE
     Indication: PANCREATIC CARCINOMA METASTATIC
     Dosage: UNK, UNKNOWN
     Route: 065
  6. CELECOXIB. [Concomitant]
     Active Substance: CELECOXIB
     Route: 065

REACTIONS (3)
  - Thrombotic microangiopathy [Unknown]
  - Death [Fatal]
  - Acute kidney injury [Unknown]
